FAERS Safety Report 10463455 (Version 1)
Quarter: 2014Q3

REPORT INFORMATION
  Report Type: Spontaneous
  Country: US (occurrence: None)
  Receive Date: 20140918
  Receipt Date: 20140918
  Transmission Date: 20150326
  Serious: Yes (Other)
  Sender: FDA-Public Use
  Company Number: None

PATIENT
  Sex: Female
  Weight: 63.05 kg

DRUGS (3)
  1. METOPROLOL SUCCINATE. [Suspect]
     Active Substance: METOPROLOL SUCCINATE
     Indication: HYPOTHYROIDISM
     Dosage: 1 1/2 TAB BID ORAL
     Route: 048
     Dates: start: 20090701, end: 20090727
  2. METOPROLOL SUCCINATE. [Suspect]
     Active Substance: METOPROLOL SUCCINATE
     Indication: HYPERTHYROIDISM
     Dosage: 1 1/2 TAB BID ORAL
     Route: 048
     Dates: start: 20090701, end: 20090727
  3. METOPROLOL SUCCINATE. [Suspect]
     Active Substance: METOPROLOL SUCCINATE
     Indication: TACHYCARDIA
     Dosage: 1 1/2 TAB BID ORAL
     Route: 048
     Dates: start: 20090701, end: 20090727

REACTIONS (3)
  - Dizziness [None]
  - Gait disturbance [None]
  - Fatigue [None]

NARRATIVE: CASE EVENT DATE: 20090715
